FAERS Safety Report 22971126 (Version 3)
Quarter: 2023Q4

REPORT INFORMATION
  Report Type: Spontaneous
  Country: US (occurrence: US)
  Receive Date: 20230922
  Receipt Date: 20231107
  Transmission Date: 20240110
  Serious: No
  Sender: FDA-Public Use
  Company Number: US-PFIZER INC-PV202300150320

PATIENT
  Age: 13 Year
  Sex: Male

DRUGS (1)
  1. GENOTROPIN [Suspect]
     Active Substance: SOMATROPIN
     Dosage: 2.2 MG
     Dates: start: 2023

REACTIONS (6)
  - Injection site pain [Unknown]
  - Injection site rash [Unknown]
  - Injection site reaction [Unknown]
  - Device leakage [Unknown]
  - Device difficult to use [Unknown]
  - Device mechanical issue [Unknown]
